FAERS Safety Report 25647194 (Version 1)
Quarter: 2025Q3

REPORT INFORMATION
  Report Type: Spontaneous
  Country: EU (occurrence: EU)
  Receive Date: 20250806
  Receipt Date: 20250806
  Transmission Date: 20251020
  Serious: Yes (Hospitalization)
  Sender: ROCHE
  Company Number: None

PATIENT
  Age: 59 Year
  Sex: Male
  Weight: 110 kg

DRUGS (6)
  1. OCRELIZUMAB [Suspect]
     Active Substance: OCRELIZUMAB
     Indication: Multiple sclerosis
     Route: 065
     Dates: start: 20250722
  2. ATORVASTATIN [Concomitant]
     Active Substance: ATORVASTATIN
     Route: 048
  3. CLOPIDOGREL BISULFATE [Concomitant]
     Active Substance: CLOPIDOGREL BISULFATE
     Route: 048
  4. IRBESARTAN/HYDROCHLOORTHIAZIDE TABLET 300/12,5MG / COAPROVEL TABLET FI [Concomitant]
     Route: 048
  5. METOPROLOL TABLET MGA  25MG (SUCCINAAT) / Brand name not specified [Concomitant]
     Route: 048
  6. FAMPRIDINE TABLET MGA 10MG / FAMPYRA TABLET MVA 10MG [Concomitant]
     Route: 048

REACTIONS (1)
  - Acute myocardial infarction [Recovering/Resolving]
